FAERS Safety Report 6999989-6 (Version None)
Quarter: 2010Q3

REPORT INFORMATION
  Report Type: 
  Country: None (occurrence: None)
  Receive Date: 20100920
  Receipt Date: 20091207
  Transmission Date: 20110219
  Serious: No
  Sender: FDA-Public Use
  Company Number: US-ASTRAZENECA-2007UW01573

PATIENT
  Age: 456 Month
  Sex: Male
  Weight: 80.7 kg

DRUGS (20)
  1. SEROQUEL [Suspect]
     Indication: BIPOLAR I DISORDER
     Dosage: 100 - 300MG
     Route: 048
     Dates: start: 20040301, end: 20050101
  2. SEROQUEL [Suspect]
     Indication: SLEEP DISORDER
     Dosage: 100 - 300MG
     Route: 048
     Dates: start: 20040301, end: 20050101
  3. SEROQUEL [Suspect]
     Indication: DEPRESSION
     Dosage: 100 - 300MG
     Route: 048
     Dates: start: 20040301, end: 20050101
  4. SEROQUEL [Suspect]
     Dosage: 100 - 300 MG, 25 - 100 MG
     Route: 048
     Dates: start: 20040311
  5. SEROQUEL [Suspect]
     Dosage: 100 - 300 MG, 25 - 100 MG
     Route: 048
     Dates: start: 20040311
  6. SEROQUEL [Suspect]
     Dosage: 100 - 300 MG, 25 - 100 MG
     Route: 048
     Dates: start: 20040311
  7. SEROQUEL [Suspect]
     Dosage: 25-100 MG
     Route: 048
     Dates: start: 20040311
  8. SEROQUEL [Suspect]
     Dosage: 25-100 MG
     Route: 048
     Dates: start: 20040311
  9. SEROQUEL [Suspect]
     Dosage: 25-100 MG
     Route: 048
     Dates: start: 20040311
  10. ULTRAM [Concomitant]
     Indication: PAIN
     Route: 048
     Dates: start: 20010201
  11. PAXIL [Concomitant]
     Route: 048
     Dates: start: 20010306
  12. AMBIEN [Concomitant]
     Route: 048
     Dates: start: 20020318
  13. METFORMIN [Concomitant]
     Route: 048
     Dates: start: 20020511
  14. EFFEXOR [Concomitant]
     Dosage: 37.5 - 150 MG
     Route: 048
     Dates: start: 20020601
  15. REMERON [Concomitant]
     Indication: SLEEP DISORDER
     Route: 048
     Dates: start: 20031106
  16. REMERON [Concomitant]
     Indication: NEURALGIA
     Route: 048
     Dates: start: 20031106
  17. REMERON [Concomitant]
     Indication: DEPRESSION
     Route: 048
     Dates: start: 20031106
  18. TOPROL-XL [Concomitant]
     Dosage: 50 - 100 MG
     Route: 048
     Dates: start: 20040520
  19. LASIX [Concomitant]
     Indication: OEDEMA PERIPHERAL
     Route: 048
     Dates: start: 20060314
  20. LOPID [Concomitant]
     Indication: BLOOD CHOLESTEROL INCREASED
     Dates: start: 20080729

REACTIONS (7)
  - DIABETES MELLITUS [None]
  - FOLLICULITIS [None]
  - HYPERTENSION [None]
  - METABOLIC SYNDROME [None]
  - SNORING [None]
  - SOMNOLENCE [None]
  - TYPE 2 DIABETES MELLITUS [None]
